FAERS Safety Report 19906688 (Version 1)
Quarter: 2021Q4

REPORT INFORMATION
  Report Type: Spontaneous
  Country: US (occurrence: US)
  Receive Date: 20211001
  Receipt Date: 20211001
  Transmission Date: 20220303
  Serious: Yes (Other)
  Sender: FDA-Public Use
  Company Number: US-PFIZER INC-202101252848

PATIENT
  Age: 31 Year
  Sex: Male
  Weight: 117.93 kg

DRUGS (3)
  1. GEODON [Suspect]
     Active Substance: ZIPRASIDONE HYDROCHLORIDE\ZIPRASIDONE MESYLATE
     Indication: Autism spectrum disorder
     Dosage: 80 MG, 2X/DAY (TAKES TWO 80 MG CAPSULES A DAY WITH 120 MG)
     Dates: start: 20210912, end: 20210916
  2. GEODON [Suspect]
     Active Substance: ZIPRASIDONE HYDROCHLORIDE\ZIPRASIDONE MESYLATE
     Indication: Anxiety disorder
  3. GEODON [Suspect]
     Active Substance: ZIPRASIDONE HYDROCHLORIDE\ZIPRASIDONE MESYLATE
     Indication: Hallucination, auditory

REACTIONS (1)
  - Drug dependence [Unknown]
